FAERS Safety Report 9642035 (Version 1)
Quarter: 2013Q4

REPORT INFORMATION
  Report Type: Spontaneous
  Country: US (occurrence: None)
  Receive Date: 20131022
  Receipt Date: 20131022
  Transmission Date: 20140711
  Serious: Yes (Death, Other)
  Sender: FDA-Public Use
  Company Number: 2013-003250

PATIENT
  Age: 77 Year
  Sex: Female

DRUGS (1)
  1. ACTONEL [Suspect]
     Route: 048
     Dates: start: 20130802, end: 201309

REACTIONS (10)
  - Myocardial infarction [None]
  - Cardiomegaly [None]
  - Cardiac disorder [None]
  - Heart rate increased [None]
  - Asthenia [None]
  - Influenza like illness [None]
  - Dysphonia [None]
  - Pain [None]
  - Chest discomfort [None]
  - Dyspnoea [None]
